FAERS Safety Report 18820220 (Version 1)
Quarter: 2021Q1

REPORT INFORMATION
  Report Type: Spontaneous
  Country: NL (occurrence: NL)
  Receive Date: 20210202
  Receipt Date: 20210202
  Transmission Date: 20210419
  Serious: Yes (Hospitalization, Other)
  Sender: FDA-Public Use
  Company Number: NL-SA-2021SA019785

PATIENT
  Age: 37 Year
  Sex: Male

DRUGS (4)
  1. COCAINE [Concomitant]
     Active Substance: COCAINE
     Dosage: 0.5 GRAM COCAINE AT 21.00 H
  2. TERIFLUNOMIDE. [Suspect]
     Active Substance: TERIFLUNOMIDE
     Dosage: UNK
     Route: 048
  3. TERIFLUNOMIDE. [Suspect]
     Active Substance: TERIFLUNOMIDE
     Indication: RELAPSING-REMITTING MULTIPLE SCLEROSIS
     Dosage: 672 MG, HIGH DOSE
     Route: 048
  4. HYDROCHLOROTHIAZIDE. [Suspect]
     Active Substance: HYDROCHLOROTHIAZIDE
     Dosage: 14 DF, 1X (14 TABLETS OF 12.5 MG) AT 22.30 H
     Route: 048

REACTIONS (7)
  - Intentional product misuse [Unknown]
  - Headache [Unknown]
  - Overdose [Unknown]
  - Pollakiuria [Unknown]
  - Electrocardiogram QT prolonged [Unknown]
  - Blood pressure increased [Unknown]
  - Toxicity to various agents [Unknown]
